FAERS Safety Report 13789262 (Version 1)
Quarter: 2017Q3

REPORT INFORMATION
  Report Type: Spontaneous
  Country: US (occurrence: US)
  Receive Date: 20170725
  Receipt Date: 20170725
  Transmission Date: 20171127
  Serious: No
  Sender: FDA-Public Use
  Company Number: US-UNITED THERAPEUTICS-UNT-2017-002574

PATIENT
  Age: 53 Year
  Sex: Male
  Weight: 71.2 kg

DRUGS (2)
  1. LETAIRIS [Concomitant]
     Active Substance: AMBRISENTAN
     Indication: PRODUCT USED FOR UNKNOWN INDICATION
  2. REMODULIN [Suspect]
     Active Substance: TREPROSTINIL
     Indication: PULMONARY HYPERTENSION
     Dosage: 0.03 ?G/KG, CONTINUING
     Route: 041
     Dates: start: 20160908

REACTIONS (3)
  - Abdominal distension [Unknown]
  - Oedema peripheral [Unknown]
  - Weight increased [Unknown]

NARRATIVE: CASE EVENT DATE: 201702
